FAERS Safety Report 15339669 (Version 1)
Quarter: 2018Q3

REPORT INFORMATION
  Report Type: Spontaneous
  Country: PL (occurrence: PL)
  Receive Date: 20180831
  Receipt Date: 20180831
  Transmission Date: 20181010
  Serious: Yes (Other)
  Sender: FDA-Public Use
  Company Number: PL-PFIZER INC-2018345488

PATIENT
  Sex: Male

DRUGS (4)
  1. XANAX [Suspect]
     Active Substance: ALPRAZOLAM
     Dosage: 0.5 MG, UNK
  2. XANAX [Suspect]
     Active Substance: ALPRAZOLAM
     Dosage: GRADUALLY REDUCING THE DOSE BY 0.25/0.5MG
  3. XANAX [Suspect]
     Active Substance: ALPRAZOLAM
     Dosage: USUALLY 2 OR 3 TIMES PER DAY FOR 2 MG
  4. XANAX [Suspect]
     Active Substance: ALPRAZOLAM
     Dosage: 6?8 MG PER DAY

REACTIONS (6)
  - Tinnitus [Unknown]
  - Drug ineffective [Unknown]
  - General physical condition abnormal [Unknown]
  - Intellectual disability [Unknown]
  - Feeling abnormal [Unknown]
  - Muscular weakness [Unknown]
